FAERS Safety Report 7314643-9 (Version None)
Quarter: 2011Q1

REPORT INFORMATION
  Report Type: 
  Country: None (occurrence: None)
  Receive Date: 20110225
  Receipt Date: 20101208
  Transmission Date: 20110831
  Serious: Yes (Other)
  Sender: FDA-Public Use
  Company Number: US-MYLANLABS-2010S1019610

PATIENT
  Age: 18 Year
  Sex: Female
  Weight: 58.97 kg

DRUGS (2)
  1. AMNESTEEM [Suspect]
     Indication: ACNE
     Route: 048
     Dates: start: 20100812, end: 20101014
  2. AMNESTEEM [Suspect]
     Route: 048
     Dates: start: 20100812, end: 20101014

REACTIONS (2)
  - DIARRHOEA HAEMORRHAGIC [None]
  - ABDOMINAL PAIN [None]
